FAERS Safety Report 17315630 (Version 1)
Quarter: 2020Q1

REPORT INFORMATION
  Report Type: Spontaneous
  Country: BR (occurrence: BR)
  Receive Date: 20200124
  Receipt Date: 20200124
  Transmission Date: 20200409
  Serious: Yes (Other)
  Sender: FDA-Public Use
  Company Number: BR-JNJFOC-20190727320

PATIENT
  Age: 72 Year
  Sex: Male

DRUGS (7)
  1. ROSUVASTATIN. [Concomitant]
     Active Substance: ROSUVASTATIN
  2. ANCORON [Concomitant]
     Active Substance: AMIODARONE HYDROCHLORIDE
  3. SIMPONI [Suspect]
     Active Substance: GOLIMUMAB
     Route: 058
     Dates: start: 20180122, end: 201906
  4. DAPAGLIFLOZIN PROPANEDIOL MONOHYDRATE W/METFO [Concomitant]
  5. DIOVAN [Concomitant]
     Active Substance: VALSARTAN
  6. SIMPONI [Suspect]
     Active Substance: GOLIMUMAB
     Indication: ANKYLOSING SPONDYLITIS
     Route: 058
     Dates: start: 2016
  7. CEBRALAT [Concomitant]
     Active Substance: CILOSTAZOL

REACTIONS (3)
  - Neoplasm [Unknown]
  - Product dose omission [Unknown]
  - Drug delivery system malfunction [Unknown]

NARRATIVE: CASE EVENT DATE: 201905
